FAERS Safety Report 16033663 (Version 1)
Quarter: 2019Q1

REPORT INFORMATION
  Report Type: Spontaneous
  Country: US (occurrence: US)
  Receive Date: 20190205
  Receipt Date: 20190205
  Transmission Date: 20190418
  Serious: No
  Sender: FDA-Public Use
  Company Number: None

PATIENT
  Age: 54 Year
  Sex: Male

DRUGS (1)
  1. STELARA [Suspect]
     Active Substance: USTEKINUMAB
     Dates: start: 20181121

REACTIONS (4)
  - Rhinorrhoea [None]
  - Nasopharyngitis [None]
  - Pulmonary congestion [None]
  - Productive cough [None]

NARRATIVE: CASE EVENT DATE: 20190205
